FAERS Safety Report 7206606-9 (Version None)
Quarter: 2011Q1

REPORT INFORMATION
  Report Type: 
  Country: None (occurrence: None)
  Receive Date: 20110103
  Receipt Date: 20101229
  Transmission Date: 20110831
  Serious: Yes (Hospitalization)
  Sender: FDA-Public Use
  Company Number: US-JNJFOC-20101209228

PATIENT
  Sex: Male

DRUGS (3)
  1. MS CONTIN [Concomitant]
     Route: 065
  2. DILAUDID [Concomitant]
     Route: 065
  3. FENTANYL CITRATE [Suspect]
     Indication: ILL-DEFINED DISORDER
     Route: 062

REACTIONS (1)
  - SUICIDE ATTEMPT [None]
